FAERS Safety Report 9531027 (Version 1)
Quarter: 2013Q3

REPORT INFORMATION
  Report Type: Spontaneous
  Country: US (occurrence: None)
  Receive Date: 20130916
  Receipt Date: 20130916
  Transmission Date: 20140515
  Serious: Yes (Hospitalization)
  Sender: FDA-Public Use
  Company Number: None

PATIENT
  Age: 51 Year
  Sex: Male
  Weight: 73.48 kg

DRUGS (8)
  1. TIGECYCLINE [Suspect]
     Indication: OSTEOMYELITIS
     Route: 042
     Dates: start: 20130822, end: 20130903
  2. AMITRIPTYLINE [Concomitant]
  3. LIDODERM [Concomitant]
  4. PERCOCET [Concomitant]
  5. OXYCONTIN [Concomitant]
  6. LYRICA [Concomitant]
  7. CRESTOR [Concomitant]
  8. MIRALAX [Concomitant]

REACTIONS (4)
  - Abdominal pain upper [None]
  - Weight decreased [None]
  - Nausea [None]
  - Vomiting [None]
